FAERS Safety Report 21301375 (Version 2)
Quarter: 2022Q4

REPORT INFORMATION
  Report Type: Other
  Country: BR (occurrence: BR)
  Receive Date: 20220907
  Receipt Date: 20221110
  Transmission Date: 20230113
  Serious: Yes (Other)
  Sender: FDA-Public Use
  Company Number: BR-002147023-NVSC2022BR192114

PATIENT
  Age: 43 Year
  Sex: Male

DRUGS (8)
  1. RANIBIZUMAB [Suspect]
     Active Substance: RANIBIZUMAB
     Indication: Choroidal neovascularisation
     Dosage: UNK (THREE MONTHLY)
     Route: 050
  2. RANIBIZUMAB [Suspect]
     Active Substance: RANIBIZUMAB
     Dosage: UNK (THREE ADDITIONAL MONTHLY)
     Route: 050
  3. RANIBIZUMAB [Suspect]
     Active Substance: RANIBIZUMAB
     Dosage: UNK (OVER THE SUBSEQUENT 12 MONTH, THREE)
     Route: 050
  4. RANIBIZUMAB [Suspect]
     Active Substance: RANIBIZUMAB
     Dosage: UNK (ONE MONTH AFTER TENTH)
     Route: 050
  5. RANIBIZUMAB [Suspect]
     Active Substance: RANIBIZUMAB
     Dosage: UNK (THREE)
     Route: 050
  6. RANIBIZUMAB [Suspect]
     Active Substance: RANIBIZUMAB
     Dosage: UNK (2 INJECTION AFTER 20 WEEK OF 2ND MICROPULSE)
     Route: 050
  7. AFLIBERCEPT [Suspect]
     Active Substance: AFLIBERCEPT
     Indication: Choroidal neovascularisation
     Dosage: UNK
     Route: 065
  8. SPIRONOLACTONE [Suspect]
     Active Substance: SPIRONOLACTONE
     Indication: Choroidal neovascularisation
     Dosage: 25 MG, BID
     Route: 048

REACTIONS (3)
  - Choroidal neovascularisation [Unknown]
  - Condition aggravated [Unknown]
  - Drug ineffective [Unknown]
